FAERS Safety Report 6635882-6 (Version None)
Quarter: 2010Q1

REPORT INFORMATION
  Report Type: 
  Country: None (occurrence: None)
  Receive Date: 20100316
  Receipt Date: 20100311
  Transmission Date: 20100710
  Serious: Yes (Congenital Anomaly)
  Sender: FDA-Public Use
  Company Number: GB-TEVA-227206ISR

PATIENT

DRUGS (3)
  1. GABAPENTIN [Suspect]
     Route: 064
  2. LAMOTRIGINE [Suspect]
     Route: 064
  3. LEVETIRACETAM [Suspect]
     Route: 064

REACTIONS (1)
  - TALIPES [None]
